FAERS Safety Report 5977290-7 (Version None)
Quarter: 2008Q4

REPORT INFORMATION
  Report Type: 
  Country: None (occurrence: None)
  Receive Date: 20081203
  Receipt Date: 20081120
  Transmission Date: 20090506
  Serious: Yes (Disabling)
  Sender: FDA-Public Use
  Company Number: PHHY2008JP28936

PATIENT
  Age: 49 Year
  Sex: Male

DRUGS (1)
  1. MIKELAN LA 2% (NVO) [Suspect]
     Dosage: 1 GTT, QD
     Route: 047
     Dates: start: 20080512

REACTIONS (1)
  - DEAFNESS [None]
